FAERS Safety Report 8616187-0 (Version None)
Quarter: 2012Q3

REPORT INFORMATION
  Report Type: 
  Country: None (occurrence: None)
  Receive Date: 20120823
  Receipt Date: 20120816
  Transmission Date: 20120928
  Serious: Yes (Other)
  Sender: FDA-Public Use
  Company Number: AU-AMGEN-AUSSP2012052346

PATIENT
  Age: 53 Year

DRUGS (4)
  1. TELMISARTAN [Suspect]
     Dosage: 40 MG, UNK
     Dates: end: 20120426
  2. ESCITALOPRAM [Suspect]
     Indication: DEPRESSION
     Dosage: 10 MG, QD
     Dates: start: 20120424, end: 20120426
  3. LERCANIDIPINE [Suspect]
     Dosage: 10 MG, QD
     Dates: end: 20120425
  4. CINACALCET HYDROCHLORIDE [Suspect]
     Indication: PRODUCT USED FOR UNKNOWN INDICATION
     Dosage: UNK

REACTIONS (3)
  - ORTHOSTATIC HYPOTENSION [None]
  - DIZZINESS [None]
  - NAUSEA [None]
